FAERS Safety Report 7546771-7 (Version None)
Quarter: 2011Q2

REPORT INFORMATION
  Report Type: 
  Country: None (occurrence: None)
  Receive Date: 20110614
  Receipt Date: 20110531
  Transmission Date: 20111010
  Serious: No
  Sender: FDA-Public Use
  Company Number: US-B.I. PHARMACEUTICALS,INC./RIDGEFIELD-2011-BP-14336BP

PATIENT
  Age: 92 Year
  Sex: Male

DRUGS (11)
  1. FISH OIL [Concomitant]
     Indication: PROPHYLAXIS
     Route: 048
  2. PROMONADINE [Concomitant]
     Indication: GLAUCOMA
     Route: 031
  3. TRAVAPROST [Concomitant]
     Indication: GLAUCOMA
     Route: 031
  4. METOPROLOL [Concomitant]
     Indication: HYPERTENSION
     Dosage: 12.5 MG
     Route: 048
  5. AVODART [Concomitant]
     Indication: DYSURIA
     Route: 048
  6. MAGNESIUM SULFATE [Concomitant]
     Indication: PROPHYLAXIS
     Route: 048
  7. ACIDOPHILUS [Concomitant]
     Indication: PROPHYLAXIS
     Route: 048
  8. VENLAFAXINE HCL [Concomitant]
     Indication: DEPRESSION
     Dosage: 75 MG
     Route: 048
  9. VIT D [Concomitant]
     Indication: PROPHYLAXIS
     Route: 048
  10. CO Q10 [Concomitant]
     Indication: PROPHYLAXIS
     Route: 048
  11. PRADAXA [Suspect]
     Indication: ANTICOAGULANT THERAPY
     Dosage: 300 MG
     Route: 048
     Dates: start: 20110516

REACTIONS (2)
  - WEIGHT DECREASED [None]
  - DIARRHOEA [None]
